FAERS Safety Report 21975902 (Version 3)
Quarter: 2023Q2

REPORT INFORMATION
  Report Type: Spontaneous
  Country: PE (occurrence: PE)
  Receive Date: 20230210
  Receipt Date: 20230405
  Transmission Date: 20230721
  Serious: Yes (Hospitalization, Other)
  Sender: FDA-Public Use
  Company Number: PE-SA-SAC20230209000341

PATIENT
  Age: 61 Year
  Sex: Female

DRUGS (1)
  1. ARAVA [Suspect]
     Active Substance: LEFLUNOMIDE
     Indication: Rheumatoid arthritis
     Dosage: 20 MG, QD
     Route: 048
     Dates: start: 2017

REACTIONS (4)
  - Developmental hip dysplasia [Recovered/Resolved]
  - Femur fracture [Recovered/Resolved]
  - Hip surgery [Unknown]
  - Tibia fracture [Recovered/Resolved]

NARRATIVE: CASE EVENT DATE: 20191005
